FAERS Safety Report 4325756-8 (Version None)
Quarter: 2004Q1

REPORT INFORMATION
  Report Type: 
  Country: None (occurrence: None)
  Receive Date: 20040323
  Receipt Date: 20040310
  Transmission Date: 20041129
  Serious: Yes (Life-Threatening, Hospitalization)
  Sender: FDA-Public Use
  Company Number: 2004UW03625

PATIENT
  Age: 83 Year
  Sex: Male
  Weight: 84.5958 kg

DRUGS (18)
  1. IRESSA [Suspect]
     Indication: COLON CANCER METASTATIC
     Dosage: 250 MG QD PO
     Route: 048
     Dates: start: 20040204, end: 20040223
  2. LEUCOVORIN CALCIUM [Suspect]
     Indication: COLON CANCER METASTATIC
     Dosage: 200 MG/M2 IV
     Route: 042
     Dates: start: 20040203, end: 20040218
  3. IRINOTECAN [Suspect]
     Indication: COLON CANCER METASTATIC
     Dosage: 180 MG/M2 IV
     Route: 042
     Dates: start: 20040203, end: 20040218
  4. FLUOROURACIL INJ [Suspect]
     Indication: COLON CANCER METASTATIC
     Dosage: 180 MG/M2 IV
     Route: 042
     Dates: start: 20040203, end: 20040218
  5. FLUOROURACIL INJ [Suspect]
     Indication: COLON CANCER METASTATIC
     Dosage: 1200 MG/M2 IV
     Route: 042
     Dates: start: 20040203, end: 20040220
  6. CLEOCIN [Concomitant]
  7. COMPAZINE [Concomitant]
  8. DETROL [Concomitant]
  9. IRON [Concomitant]
  10. LEVAQUIN [Concomitant]
  11. MULTIVITAMIN [Concomitant]
  12. NEUTRA-PROS [Concomitant]
  13. ZOFRAN [Concomitant]
  14. NEXIUM [Concomitant]
  15. VITAMIN E [Concomitant]
  16. CALCIUM [Concomitant]
  17. CEFEPIME [Concomitant]
  18. VANCOMYCIN [Concomitant]

REACTIONS (6)
  - COUGH [None]
  - DIARRHOEA [None]
  - LUNG INFILTRATION [None]
  - NEUTROPENIA [None]
  - PYREXIA [None]
  - SMALL INTESTINAL OBSTRUCTION [None]
